FAERS Safety Report 15754006 (Version 1)
Quarter: 2018Q4

REPORT INFORMATION
  Report Type: Spontaneous
  Country: US (occurrence: US)
  Receive Date: 20181222
  Receipt Date: 20181222
  Transmission Date: 20190205
  Serious: No
  Sender: FDA-Public Use
  Company Number: US-JNJFOC-20181200683

PATIENT
  Sex: Female
  Weight: 63.5 kg

DRUGS (2)
  1. TYLENOL REGULAR STRENGTH [Suspect]
     Active Substance: ACETAMINOPHEN
     Indication: INJURY
     Dosage: OVER THE COURSE OF A FEW DAYS
     Route: 048
  2. LEVOTHYROXINE. [Concomitant]
     Active Substance: LEVOTHYROXINE
     Indication: ARTHRALGIA
     Dosage: FOR YEARS
     Route: 065

REACTIONS (2)
  - Product use in unapproved indication [Unknown]
  - Abdominal pain [Recovered/Resolved]
